FAERS Safety Report 10390178 (Version 1)
Quarter: 2014Q1

REPORT INFORMATION
  Report Type: Spontaneous
  Country: US (occurrence: None)
  Receive Date: 20140306
  Receipt Date: 20140306
  Transmission Date: 20141002
  Serious: Yes (Other)
  Sender: FDA-Public Use
  Company Number: 163-21880-13014254

PATIENT
  Age: 72 Year
  Sex: Male

DRUGS (2)
  1. BLOOD (BLOOD AND RELATED PRODUCTS) [Concomitant]
  2. REVLIMID (LENALIDOMIDE) (CAPSULES) [Suspect]
     Indication: PLASMA CELL MYELOMA
     Dosage: INTERRUPTED; 21 IN 28 D;
     Route: 048
     Dates: start: 201301

REACTIONS (2)
  - Full blood count decreased [None]
  - Drug dose omission [None]
